FAERS Safety Report 5809703-5 (Version None)
Quarter: 2008Q3

REPORT INFORMATION
  Report Type: 
  Country: None (occurrence: None)
  Receive Date: 20080711
  Receipt Date: 20080711
  Transmission Date: 20090109
  Serious: No
  Sender: FDA-Public Use
  Company Number: None

PATIENT
  Age: 60 Year
  Sex: Female
  Weight: 86.1834 kg

DRUGS (1)
  1. ZICAM MATRIXX [Suspect]
     Indication: NASAL CONGESTION
     Dosage: ONE SPRAY IN EACH NOSTRIL ONCE A DAY
     Dates: start: 20080312, end: 20080316

REACTIONS (8)
  - DRUG INEFFECTIVE [None]
  - HYPOGEUSIA [None]
  - HYPOSMIA [None]
  - INFLAMMATION [None]
  - NASAL DISCOMFORT [None]
  - NERVE INJURY [None]
  - OLFACTORY NERVE DISORDER [None]
  - SWELLING [None]
